FAERS Safety Report 25504050 (Version 1)
Quarter: 2025Q3

REPORT INFORMATION
  Report Type: Spontaneous
  Country: US (occurrence: None)
  Receive Date: 20250702
  Receipt Date: 20250702
  Transmission Date: 20251020
  Serious: Yes (Other)
  Sender: FDA-CTU
  Company Number: None

PATIENT
  Sex: Female

DRUGS (13)
  1. BOTOX [Suspect]
     Active Substance: ONABOTULINUMTOXINA
     Indication: Migraine
     Dates: start: 20200708
  2. BOTOX [Concomitant]
     Active Substance: ONABOTULINUMTOXINA
  3. CALCIUM TAB 500MG [Concomitant]
  4. COQ10 CAP 30MG [Concomitant]
  5. DHEA CAP 10MG [Concomitant]
  6. DHEA CAP 10MG [Concomitant]
  7. DHEA CAP 10MG [Concomitant]
  8. L-CARNITINE CAP 250MG [Concomitant]
  9. MAGNESIUM TAB 250MG [Concomitant]
  10. MULTIVITAMIN TAB ADULTS [Concomitant]
  11. ONDANSETRON [Concomitant]
     Active Substance: ONDANSETRON
  12. OZEMPIC INJ 2/1.5ML [Concomitant]
  13. SERTRALINE TAB 50MG [Concomitant]

REACTIONS (1)
  - Breast cancer [None]
